FAERS Safety Report 11045545 (Version 2)
Quarter: 2015Q2

REPORT INFORMATION
  Report Type: Spontaneous
  Country: JP (occurrence: JP)
  Receive Date: 20150417
  Receipt Date: 20150619
  Transmission Date: 20150821
  Serious: Yes (Other)
  Sender: FDA-Public Use
  Company Number: JP-MYLANLABS-2015M1011030

PATIENT

DRUGS (4)
  1. SEVOFLURANE ANAESTHETIC LIQUID FOR INHALATION ^MYLAN^ [Suspect]
     Active Substance: SEVOFLURANE
     Indication: OPEN REDUCTION OF FRACTURE
  2. REMIFENTANIL HYDROCHLORIDE [Suspect]
     Active Substance: REMIFENTANIL HYDROCHLORIDE
     Indication: OPEN REDUCTION OF FRACTURE
  3. SEVOFLURANE ANAESTHETIC LIQUID FOR INHALATION ^MYLAN^ [Suspect]
     Active Substance: SEVOFLURANE
     Indication: ANAESTHESIA PROCEDURE
     Route: 055
  4. REMIFENTANIL HYDROCHLORIDE [Suspect]
     Active Substance: REMIFENTANIL HYDROCHLORIDE
     Indication: ANAESTHESIA PROCEDURE
     Route: 042

REACTIONS (1)
  - Post procedural myocardial infarction [Unknown]
